FAERS Safety Report 14547784 (Version 1)
Quarter: 2018Q1

REPORT INFORMATION
  Report Type: Spontaneous
  Country: JP (occurrence: JP)
  Receive Date: 20180219
  Receipt Date: 20180219
  Transmission Date: 20180509
  Serious: Yes (Other)
  Sender: FDA-Public Use
  Company Number: JP-ALLERGAN-1807362US

PATIENT
  Age: 84 Year
  Sex: Female

DRUGS (1)
  1. RISEDRONATE SODIUM - BP [Suspect]
     Active Substance: RISEDRONATE SODIUM
     Indication: OSTEOPOROSIS
     Dosage: UNK
     Route: 048
     Dates: start: 201111

REACTIONS (5)
  - Bone disorder [Unknown]
  - Osteonecrosis of jaw [Recovering/Resolving]
  - Abscess [Unknown]
  - Swelling face [Unknown]
  - Fistula [Unknown]

NARRATIVE: CASE EVENT DATE: 201610
